FAERS Safety Report 5707239-3 (Version None)
Quarter: 2008Q2

REPORT INFORMATION
  Report Type: 
  Country: None (occurrence: None)
  Receive Date: 20080416
  Receipt Date: 20080409
  Transmission Date: 20081010
  Serious: Yes (Hospitalization, Other)
  Sender: FDA-Public Use
  Company Number: GB-ABBOTT-08P-167-0446412-00

PATIENT
  Sex: Male

DRUGS (2)
  1. KLACID TABLETS [Suspect]
     Indication: BRONCHITIS
     Dates: start: 20051101
  2. KLACID TABLETS [Suspect]
     Dates: start: 20070101

REACTIONS (3)
  - COUGH [None]
  - DRUG INEFFECTIVE [None]
  - INGUINAL HERNIA [None]
